FAERS Safety Report 8267351-4 (Version None)
Quarter: 2012Q2

REPORT INFORMATION
  Report Type: 
  Country: None (occurrence: None)
  Receive Date: 20120409
  Receipt Date: 20120331
  Transmission Date: 20120825
  Serious: Yes (Other)
  Sender: FDA-Public Use
  Company Number: PHHY2012DE028106

PATIENT
  Age: 6 Year
  Sex: Male

DRUGS (4)
  1. ANTI-THYMOCYTE GLOBULIN EQUINE NOS [Concomitant]
     Dosage: UNK UKN, UNK
  2. CYCLOSPORINE [Suspect]
     Indication: STEM CELL TRANSPLANT
     Dosage: UNK UKN, UNK
  3. ETOPOSIDE [Concomitant]
     Dosage: UNK UKN, UNK
  4. METHOTREXATE [Suspect]
     Dosage: UNK UKN, UNK

REACTIONS (5)
  - GRAFT VERSUS HOST DISEASE IN INTESTINE [None]
  - HEPATIC ENZYME INCREASED [None]
  - HEPATIC CIRRHOSIS [None]
  - GRAFT VERSUS HOST DISEASE IN SKIN [None]
  - GRAFT VERSUS HOST DISEASE IN LIVER [None]
